FAERS Safety Report 6115137-9 (Version None)
Quarter: 2009Q1

REPORT INFORMATION
  Report Type: 
  Country: None (occurrence: None)
  Receive Date: 20090313
  Receipt Date: 20090303
  Transmission Date: 20090719
  Serious: Yes (Other)
  Sender: FDA-Public Use
  Company Number: US-PFIZER INC-2008101349

PATIENT
  Sex: Male
  Weight: 70 kg

DRUGS (18)
  1. LIPITOR [Suspect]
     Indication: BLOOD CHOLESTEROL INCREASED
     Dosage: 20 MG, 1X/DAY
     Dates: start: 20081111, end: 20081121
  2. TRAMADOL HYDROCHLORIDE [Concomitant]
     Dosage: 50 MG, UNK
  3. AMLODIPINE [Concomitant]
  4. CARVEDILOL [Concomitant]
     Dosage: 625 MG, UNK
  5. ASPIRIN [Concomitant]
     Dosage: 81 MG, UNK
  6. OMEPRAZOLE [Concomitant]
     Dosage: 20 MG, UNK
  7. LUPRON [Concomitant]
  8. ONE-A-DAY [Concomitant]
  9. GINKO BILOBA [Concomitant]
  10. VITAMIN D [Concomitant]
  11. SUPER VITAMIN B COMPLEX [Concomitant]
  12. GLUCOSAMINE [Concomitant]
  13. CALCIUM MAGNESIUM ZINC [Concomitant]
  14. ASCORBIC ACID [Concomitant]
     Dosage: 1000 MG, UNK
  15. OMEGA-3 TRIGLYCERIDES [Concomitant]
  16. UBIDECARENONE [Concomitant]
  17. CINNAMON [Concomitant]
     Dosage: 500 MG, UNK
  18. NIACIN [Concomitant]

REACTIONS (5)
  - ARTHRALGIA [None]
  - DYSPNOEA [None]
  - FLATULENCE [None]
  - GAIT DISTURBANCE [None]
  - MUSCULAR WEAKNESS [None]
